FAERS Safety Report 6144037-3 (Version None)
Quarter: 2009Q2

REPORT INFORMATION
  Report Type: 
  Country: None (occurrence: None)
  Receive Date: 20090406
  Receipt Date: 20090330
  Transmission Date: 20091009
  Serious: Yes (Other)
  Sender: FDA-Public Use
  Company Number: US-B.I. PHARMACEUTICALS,INC./RIDGEFIELD-2009-BP-04010BP

PATIENT
  Age: 69 Year
  Sex: Female

DRUGS (19)
  1. COMBIVENT [Suspect]
     Indication: CHRONIC OBSTRUCTIVE PULMONARY DISEASE
     Dosage: 9PUF
     Route: 055
     Dates: start: 20060101
  2. SPIRIVA [Concomitant]
     Indication: CHRONIC OBSTRUCTIVE PULMONARY DISEASE
     Dosage: 18MCG
     Route: 055
     Dates: start: 20060101
  3. AMLODIPINE BESYLATE [Concomitant]
     Indication: HYPERTENSION
     Route: 048
  4. DIOVAN [Concomitant]
     Indication: HYPERTENSION
     Dosage: 320MG
     Route: 048
  5. HYDROCHLOROTHIAZIDE [Concomitant]
     Indication: HYPERTENSION
     Dosage: 25MG
     Route: 048
  6. LOVASTATIN [Concomitant]
     Indication: BLOOD CHOLESTEROL INCREASED
     Dosage: 20MG
     Route: 048
  7. LYRICA [Concomitant]
     Indication: NEUROPATHY PERIPHERAL
     Dosage: 300MG
     Route: 048
  8. SYNTHROID [Concomitant]
     Indication: HYPOTHYROIDISM
     Dosage: .125MG
     Route: 048
  9. IBUPROFEN [Concomitant]
     Indication: NEUROPATHY PERIPHERAL
     Dosage: 2400MG
     Route: 048
  10. TRAZODONE [Concomitant]
     Indication: SLEEP DISORDER THERAPY
     Dosage: 200MG
     Route: 048
  11. DITROPAN SR [Concomitant]
     Indication: BLADDER DISORDER
     Dosage: 15MG
     Route: 048
  12. POTASSIUM CHLORIDE [Concomitant]
     Indication: MINERAL SUPPLEMENTATION
     Dosage: 20MG
     Route: 048
  13. LORTAB [Concomitant]
     Indication: NEUROPATHY PERIPHERAL
     Route: 048
  14. ASPIRIN [Concomitant]
     Indication: CARDIOVASCULAR EVENT PROPHYLAXIS
     Dosage: 81MG
     Route: 048
  15. ASTELIN [Concomitant]
     Indication: NASAL DECONGESTION THERAPY
     Dosage: 1PUF
  16. ASTELIN [Concomitant]
     Indication: HYPERSENSITIVITY
  17. NASACORT [Concomitant]
     Indication: NASAL DECONGESTION THERAPY
     Dosage: 1PUF
  18. NASACORT [Concomitant]
     Indication: HYPERSENSITIVITY
  19. PREDNISONE EYE DROPS [Concomitant]
     Indication: DRUG THERAPY

REACTIONS (4)
  - CHEST DISCOMFORT [None]
  - DRUG INEFFECTIVE [None]
  - DYSPNOEA [None]
  - MEDICATION ERROR [None]
